FAERS Safety Report 7435279-5 (Version None)
Quarter: 2011Q2

REPORT INFORMATION
  Report Type: 
  Country: None (occurrence: None)
  Receive Date: 20110425
  Receipt Date: 20110411
  Transmission Date: 20111010
  Serious: Yes (Other)
  Sender: FDA-Public Use
  Company Number: US-JNJFOC-20110404994

PATIENT
  Age: 47 Year
  Sex: Female
  Weight: 59.88 kg

DRUGS (2)
  1. BENADRYL [Suspect]
     Indication: ANAESTHESIA
     Route: 030
  2. BENADRYL [Suspect]
     Route: 030

REACTIONS (6)
  - NASAL OEDEMA [None]
  - HYPOAESTHESIA FACIAL [None]
  - LIP SWELLING [None]
  - LIP PAIN [None]
  - DYSPNOEA [None]
  - OFF LABEL USE [None]
